FAERS Safety Report 5467477-4 (Version None)
Quarter: 2007Q3

REPORT INFORMATION
  Report Type: 
  Country: None (occurrence: None)
  Receive Date: 20070925
  Receipt Date: 20070914
  Transmission Date: 20080115
  Serious: Yes (Hospitalization, Other)
  Sender: FDA-Public Use
  Company Number: HQWYE163314SEP07

PATIENT
  Sex: Female

DRUGS (3)
  1. PREMARIN [Suspect]
     Indication: HORMONE REPLACEMENT THERAPY
     Dosage: NOT PROVIDED
     Route: 065
  2. AMANTADINE HCL [Concomitant]
     Indication: FATIGUE
     Dosage: NOT PROVIDED
     Route: 065
  3. REBIF [Suspect]
     Indication: MULTIPLE SCLEROSIS
     Dosage: 44 MCG, THREE TIMES PER WEEK
     Route: 058
     Dates: start: 20030709

REACTIONS (3)
  - CONDITION AGGRAVATED [None]
  - MULTIPLE SCLEROSIS [None]
  - OVARIAN CYST [None]
